FAERS Safety Report 15515562 (Version 12)
Quarter: 2022Q1

REPORT INFORMATION
  Report Type: Other
  Country: CA (occurrence: None)
  Receive Date: 20181017
  Receipt Date: 20220101
  Transmission Date: 20220424
  Serious: Yes (Other)
  Sender: FDA-Public Use
  Company Number: CA-ROCHE-2197803

PATIENT
  Age: 52 Year
  Sex: Male

DRUGS (2)
  1. OCREVUS [Suspect]
     Active Substance: OCRELIZUMAB
     Indication: Primary progressive multiple sclerosis
     Dosage: 1.00 X 300 MG DAY 1, 15 THEN EVERY 6 MONTHS (Q6M)
     Route: 042
     Dates: start: 20181002
  2. GABAPENTIN [Concomitant]
     Active Substance: GABAPENTIN
     Dosage: ONE TABLET ONCE DAILY
     Route: 048

REACTIONS (16)
  - Postoperative wound infection [Unknown]
  - Back disorder [Unknown]
  - Nasopharyngitis [Recovering/Resolving]
  - Respiratory tract congestion [Not Recovered/Not Resolved]
  - Rhinorrhoea [Not Recovered/Not Resolved]
  - Sneezing [Not Recovered/Not Resolved]
  - Oropharyngeal pain [Not Recovered/Not Resolved]
  - Gastric disorder [Unknown]
  - Hypoaesthesia [Not Recovered/Not Resolved]
  - Pain [Recovering/Resolving]
  - Gastric disorder [Recovered/Resolved]
  - Nausea [Recovered/Resolved]
  - Nasopharyngitis [Recovering/Resolving]
  - Spinal disorder [Not Recovered/Not Resolved]
  - Nerve compression [Not Recovered/Not Resolved]
  - Gastrointestinal disorder [Not Recovered/Not Resolved]

NARRATIVE: CASE EVENT DATE: 20181016
